FAERS Safety Report 22035729 (Version 1)
Quarter: 2023Q1

REPORT INFORMATION
  Report Type: Report from Study
  Country: US (occurrence: US)
  Receive Date: 20230224
  Receipt Date: 20230224
  Transmission Date: 20230418
  Serious: Yes (Hospitalization)
  Sender: FDA-Public Use
  Company Number: US-JAZZ PHARMACEUTICALS-2022-US-023216

PATIENT
  Sex: Male

DRUGS (37)
  1. EPIDIOLEX [Suspect]
     Active Substance: CANNABIDIOL
     Indication: Pseudomonas infection
     Dosage: 5.4 MILLILITER, BID
     Route: 048
  2. EPIDIOLEX [Suspect]
     Active Substance: CANNABIDIOL
     Indication: Burkholderia mallei infection
  3. EPIDIOLEX [Suspect]
     Active Substance: CANNABIDIOL
     Indication: Burkholderia pseudomallei infection
  4. EPIDIOLEX [Suspect]
     Active Substance: CANNABIDIOL
     Indication: Epilepsy
  5. EPIDIOLEX [Suspect]
     Active Substance: CANNABIDIOL
     Indication: Acute respiratory distress syndrome
  6. EPIDIOLEX [Suspect]
     Active Substance: CANNABIDIOL
     Indication: Chronic respiratory failure
  7. EPIDIOLEX [Suspect]
     Active Substance: CANNABIDIOL
     Indication: Hypoxia
  8. EPIDIOLEX [Suspect]
     Active Substance: CANNABIDIOL
     Indication: Hypercapnia
  9. EPIDIOLEX [Suspect]
     Active Substance: CANNABIDIOL
     Indication: Gastrooesophageal reflux disease
  10. EPIDIOLEX [Suspect]
     Active Substance: CANNABIDIOL
     Indication: Oesophagitis
  11. EPIDIOLEX [Suspect]
     Active Substance: CANNABIDIOL
     Indication: Fallot^s tetralogy
  12. EPIDIOLEX [Suspect]
     Active Substance: CANNABIDIOL
     Indication: Seizure
  13. EPIDIOLEX [Suspect]
     Active Substance: CANNABIDIOL
     Indication: Tracheostomy
  14. ALDACTAZIDE [Concomitant]
     Active Substance: HYDROCHLOROTHIAZIDE\SPIRONOLACTONE
     Indication: Product used for unknown indication
     Dosage: UNK
  15. CLONAZEPAM [Concomitant]
     Active Substance: CLONAZEPAM
     Indication: Product used for unknown indication
     Dosage: UNK
  16. DEXTROSE\SODIUM CHLORIDE [Concomitant]
     Active Substance: DEXTROSE\SODIUM CHLORIDE
     Indication: Product used for unknown indication
     Dosage: UNK
  17. BUDESONIDE [Concomitant]
     Active Substance: BUDESONIDE
     Dosage: UNK
  18. ALBUTEROL SULFATE [Concomitant]
     Active Substance: ALBUTEROL SULFATE
     Dosage: UNK
  19. VIMPAT [Concomitant]
     Active Substance: LACOSAMIDE
     Dosage: UNK
  20. PHENOBARBITAL [Concomitant]
     Active Substance: PHENOBARBITAL
     Dosage: UNK
  21. KEPPRA XR [Concomitant]
     Active Substance: LEVETIRACETAM
     Dosage: UNK
  22. FOLIC ACID\IRON [Concomitant]
     Active Substance: FOLIC ACID\IRON
     Dosage: UNK
  23. BENZOYL PEROXIDE [Concomitant]
     Active Substance: BENZOYL PEROXIDE
     Dosage: UNK
  24. BISACODYL [Concomitant]
     Active Substance: BISACODYL
     Dosage: UNK
  25. CITRIC ACID;SODIUM CITRATE [Concomitant]
     Dosage: UNK
  26. DIAZEPAM [Concomitant]
     Active Substance: DIAZEPAM
     Dosage: UNK
  27. FERROUS SULFATE [Concomitant]
     Active Substance: FERROUS SULFATE
     Dosage: UNK
  28. CAYSTON [Concomitant]
     Active Substance: AZTREONAM
     Indication: Product used for unknown indication
  29. PULMICORT TURBUHALER [Concomitant]
     Active Substance: BUDESONIDE
     Indication: Product used for unknown indication
  30. ALDACTONE [Concomitant]
     Active Substance: SPIRONOLACTONE
     Indication: Product used for unknown indication
  31. NEOMYCIN SULFATE [Concomitant]
     Active Substance: NEOMYCIN SULFATE
     Indication: Product used for unknown indication
  32. TOPIRAMATE [Concomitant]
     Active Substance: TOPIRAMATE
     Indication: Product used for unknown indication
  33. VALPROIC ACID [Concomitant]
     Active Substance: VALPROIC ACID
     Indication: Product used for unknown indication
  34. BACTRIM [Concomitant]
     Active Substance: SULFAMETHOXAZOLE\TRIMETHOPRIM
     Indication: Product used for unknown indication
  35. PROSOURCE NO CARB [Concomitant]
     Indication: Product used for unknown indication
  36. ACIDOPHILUS/PECTIN [Concomitant]
     Indication: Product used for unknown indication
  37. POTASSIUM [Concomitant]
     Active Substance: POTASSIUM
     Indication: Product used for unknown indication

REACTIONS (2)
  - Hospitalisation [Unknown]
  - Off label use [Unknown]
